FAERS Safety Report 9439152 (Version 1)
Quarter: 2013Q3

REPORT INFORMATION
  Report Type: Spontaneous
  Country: US (occurrence: US)
  Receive Date: 20130802
  Receipt Date: 20130802
  Transmission Date: 20140515
  Serious: Yes (Other)
  Sender: FDA-Public Use
  Company Number: US-ASTRAZENECA-2013SE57026

PATIENT
  Age: 86 Year
  Sex: Male
  Weight: 54.4 kg

DRUGS (6)
  1. CRESTOR [Suspect]
     Indication: BLOOD CHOLESTEROL INCREASED
     Route: 048
  2. SYNTHROID [Concomitant]
     Dosage: 50 MCG 6 DAYS A WEEK AND 100 MCG ONE DAY A WEEK
     Route: 048
  3. BABY ASPIRIN [Concomitant]
     Route: 048
  4. ALPHAGAN [Concomitant]
     Indication: GLAUCOMA
     Dosage: ONE DROP EACH EYE TWO TIMES A DAY
     Route: 050
  5. ZIOPTAN [Concomitant]
     Indication: GLAUCOMA
     Dosage: ONE DROP EACH EYE DAILY
     Route: 050
  6. LOVAZA [Concomitant]

REACTIONS (12)
  - Arterial occlusive disease [Unknown]
  - Orthostatic hypotension [Unknown]
  - Heart rate decreased [Unknown]
  - Hernia [Unknown]
  - Atrial fibrillation [Unknown]
  - Haemoglobin decreased [Unknown]
  - Transferrin saturation decreased [Unknown]
  - Weight decreased [Unknown]
  - Anaemia [Unknown]
  - Hypoparathyroidism [Unknown]
  - Hyperparathyroidism [Unknown]
  - Asthenia [Unknown]
